FAERS Safety Report 6772486-9 (Version None)
Quarter: 2010Q2

REPORT INFORMATION
  Report Type: 
  Country: None (occurrence: None)
  Receive Date: 20100616
  Receipt Date: 20100318
  Transmission Date: 20101027
  Serious: Yes (Hospitalization)
  Sender: FDA-Public Use
  Company Number: US-ASTRAZENECA-2010SE07555

PATIENT
  Age: 46 Year
  Sex: Female

DRUGS (6)
  1. PULMICORT RESPULES [Suspect]
     Route: 055
  2. PRILOSEC [Concomitant]
  3. SPRIVIA [Concomitant]
  4. LISINOPRIL [Concomitant]
  5. VALIUM [Concomitant]
  6. ALBUTEROL [Concomitant]

REACTIONS (2)
  - PNEUMONIA [None]
  - STAPHYLOCOCCAL INFECTION [None]
